FAERS Safety Report 4554847-1 (Version None)
Quarter: 2005Q1

REPORT INFORMATION
  Report Type: 
  Country: None (occurrence: None)
  Receive Date: 20041228
  Receipt Date: 20041101
  Transmission Date: 20050727
  Serious: No
  Sender: FDA-Public Use
  Company Number: IND-AE-04-SAN-011

PATIENT
  Sex: Female

DRUGS (1)
  1. SANCTURA [Suspect]
     Dosage: 20 MG, BID, ORAL
     Route: 048

REACTIONS (1)
  - OEDEMA PERIPHERAL [None]
